FAERS Safety Report 24854033 (Version 3)
Quarter: 2025Q2

REPORT INFORMATION
  Report Type: Spontaneous
  Country: US (occurrence: US)
  Receive Date: 20250117
  Receipt Date: 20250425
  Transmission Date: 20250716
  Serious: Yes (Hospitalization, Other)
  Sender: REGENERON
  Company Number: US-REGENERON PHARMACEUTICALS, INC.-2025-015796

PATIENT
  Sex: Female

DRUGS (1)
  1. PRALUENT [Suspect]
     Active Substance: ALIROCUMAB
     Indication: Blood cholesterol increased
     Dosage: 75 MG, Q2W
     Route: 058
     Dates: start: 2021

REACTIONS (4)
  - Urinary tract infection [Unknown]
  - Cystitis [Unknown]
  - Urosepsis [Unknown]
  - Product preparation error [Unknown]

NARRATIVE: CASE EVENT DATE: 20240101
